FAERS Safety Report 8988383 (Version 1)
Quarter: 2012Q4

REPORT INFORMATION
  Report Type: Spontaneous
  Country: US (occurrence: None)
  Receive Date: 20121220
  Receipt Date: 20121220
  Transmission Date: 20130627
  Serious: Yes (Hospitalization)
  Sender: FDA-Public Use
  Company Number: None

PATIENT
  Age: 23 Year
  Sex: Male

DRUGS (2)
  1. PULMOZYME [Suspect]
     Indication: ASTHMA
     Route: 055
     Dates: start: 20120328
  2. PULMOZYME [Suspect]
     Indication: CYSTIC FIBROSIS
     Route: 055
     Dates: start: 20120328

REACTIONS (1)
  - Haemoptysis [None]
